FAERS Safety Report 5078948-7 (Version None)
Quarter: 2006Q3

REPORT INFORMATION
  Report Type: 
  Country: None (occurrence: None)
  Receive Date: 20060809
  Receipt Date: 20060809
  Transmission Date: 20061208
  Serious: Yes (Hospitalization)
  Sender: FDA-Public Use
  Company Number: None

PATIENT
  Sex: Male
  Weight: 101 kg

DRUGS (3)
  1. ELOXATIN [Suspect]
     Dosage: 185 MG
  2. LEUCOVORIN CALCIUM [Suspect]
     Dosage: 875 MG
  3. FLUOROURACIL [Suspect]
     Dosage: 875 MG
     Dates: end: 20060725

REACTIONS (2)
  - DEEP VEIN THROMBOSIS [None]
  - PULMONARY EMBOLISM [None]
